FAERS Safety Report 10435284 (Version 1)
Quarter: 2014Q3

REPORT INFORMATION
  Report Type: Spontaneous
  Country: US (occurrence: US)
  Receive Date: 20140908
  Receipt Date: 20140908
  Transmission Date: 20150326
  Serious: Yes (Other)
  Sender: FDA-Public Use
  Company Number: US-AUROBINDO-AUR-APL-2014-09423

PATIENT
  Sex: Male
  Weight: 97.5 kg

DRUGS (7)
  1. DIVALPROEX SODIUM EXTENDED-RELEASE TABLETS USP [Suspect]
     Active Substance: DIVALPROEX SODIUM
     Dosage: 1000 MG, DAILY
     Route: 065
  2. PREGABALIN. [Suspect]
     Active Substance: PREGABALIN
     Indication: PRODUCT USED FOR UNKNOWN INDICATION
     Dosage: 800 MG, DAILY
     Route: 065
  3. DIVALPROEX SODIUM EXTENDED-RELEASE TABLETS USP [Suspect]
     Active Substance: DIVALPROEX SODIUM
     Indication: PRODUCT USED FOR UNKNOWN INDICATION
     Dosage: 500 MG, TWO TIMES A DAY
     Route: 065
  4. TOPIRAMATE. [Suspect]
     Active Substance: TOPIRAMATE
     Indication: PRODUCT USED FOR UNKNOWN INDICATION
     Dosage: 400 MG, TWO TIMES A DAY
     Route: 065
  5. TOPIRAMATE. [Suspect]
     Active Substance: TOPIRAMATE
     Dosage: 800 MG, DAILY
     Route: 065
  6. PREGABALIN. [Suspect]
     Active Substance: PREGABALIN
     Dosage: 1000 MG, DAILY
     Route: 065
  7. PREGABALIN. [Suspect]
     Active Substance: PREGABALIN
     Dosage: 1200 MG, DAILY
     Route: 065

REACTIONS (4)
  - Somnolence [Recovered/Resolved]
  - Aggression [Recovered/Resolved]
  - Convulsion [Recovered/Resolved]
  - Asthma [Recovered/Resolved]
